FAERS Safety Report 15556080 (Version 1)
Quarter: 2018Q4

REPORT INFORMATION
  Report Type: Spontaneous
  Country: US (occurrence: US)
  Receive Date: 20181026
  Receipt Date: 20181026
  Transmission Date: 20190205
  Serious: Yes (Hospitalization, Disabling, Other)
  Sender: FDA-Public Use
  Company Number: None

PATIENT
  Age: 42 Year
  Sex: Female
  Weight: 89.1 kg

DRUGS (1)
  1. CIPROFLOXACIN. [Suspect]
     Active Substance: CIPROFLOXACIN
     Indication: SINUSITIS
     Route: 048
     Dates: start: 20150901, end: 20150904

REACTIONS (32)
  - Disturbance in attention [None]
  - Tooth fracture [None]
  - Palpitations [None]
  - Muscular weakness [None]
  - Arthropathy [None]
  - Anosmia [None]
  - Visual impairment [None]
  - Diarrhoea [None]
  - Abdominal distension [None]
  - Dizziness [None]
  - Balance disorder [None]
  - Joint noise [None]
  - Musculoskeletal disorder [None]
  - Vomiting [None]
  - Hypersomnia [None]
  - Paraesthesia [None]
  - Insomnia [None]
  - Fatigue [None]
  - Feeling abnormal [None]
  - Headache [None]
  - Nausea [None]
  - Loss of employment [None]
  - Impaired work ability [None]
  - Memory impairment [None]
  - Carpal tunnel syndrome [None]
  - Meniscus injury [None]
  - Plantar fasciitis [None]
  - Ageusia [None]
  - Epicondylitis [None]
  - Blepharospasm [None]
  - Muscle twitching [None]
  - Hypoaesthesia [None]

NARRATIVE: CASE EVENT DATE: 20150913
